FAERS Safety Report 10724608 (Version 1)
Quarter: 2015Q1

REPORT INFORMATION
  Report Type: Spontaneous
  Country: US (occurrence: None)
  Receive Date: 20150116
  Receipt Date: 20150116
  Transmission Date: 20150721
  Serious: No
  Sender: FDA-Public Use
  Company Number: None

PATIENT
  Age: 56 Year
  Sex: Female

DRUGS (1)
  1. HUMIRA [Suspect]
     Active Substance: ADALIMUMAB
     Dosage: HUMIRA 40MG/0.8ML  EVERY 2 WEEKS  SUBCUTANEOUSLY
     Route: 058
     Dates: start: 20140906

REACTIONS (2)
  - Weight increased [None]
  - Fatigue [None]

NARRATIVE: CASE EVENT DATE: 20141001
